FAERS Safety Report 8787663 (Version 2)
Quarter: 2015Q2

REPORT INFORMATION
  Report Type: Report from Study
  Country: US (occurrence: US)
  Receive Date: 20120914
  Receipt Date: 20150629
  Transmission Date: 20150821
  Serious: Yes (Death)
  Sender: FDA-Public Use
  Company Number: US-ROCHE-CID000000002116604

PATIENT
  Age: 65 Year
  Sex: Female

DRUGS (16)
  1. ARANESP [Concomitant]
     Active Substance: DARBEPOETIN ALFA
     Indication: PRODUCT USED FOR UNKNOWN INDICATION
     Route: 065
  2. LASIX [Concomitant]
     Active Substance: FUROSEMIDE
     Route: 048
  3. AVASTIN [Suspect]
     Active Substance: BEVACIZUMAB
     Indication: GENITAL NEOPLASM MALIGNANT FEMALE
     Route: 065
     Dates: start: 20060104
  4. MELPHALAN [Concomitant]
     Active Substance: MELPHALAN
     Dosage: 8 TABLETS/5DAYS
     Route: 048
  5. MS CONTIN [Concomitant]
     Active Substance: MORPHINE SULFATE
     Route: 048
  6. MS CONTIN [Concomitant]
     Active Substance: MORPHINE SULFATE
     Route: 048
  7. MELPHALAN [Concomitant]
     Active Substance: MELPHALAN
     Dosage: 8 TABLETS/5DAYS
     Route: 048
  8. LASIX [Concomitant]
     Active Substance: FUROSEMIDE
     Route: 048
  9. ALDACTONE (UNITED STATES) [Concomitant]
     Route: 048
  10. OXYCONTIN [Concomitant]
     Active Substance: OXYCODONE HYDROCHLORIDE
  11. AVASTIN [Suspect]
     Active Substance: BEVACIZUMAB
     Indication: OFF LABEL USE
  12. THALIDOMIDE [Concomitant]
     Active Substance: THALIDOMIDE
     Indication: PRODUCT USED FOR UNKNOWN INDICATION
     Route: 048
  13. TARCEVA [Suspect]
     Active Substance: ERLOTINIB HYDROCHLORIDE
     Indication: GENITAL NEOPLASM MALIGNANT FEMALE
     Route: 048
  14. AVASTIN [Suspect]
     Active Substance: BEVACIZUMAB
     Indication: MALIGNANT NEOPLASM OF UTERINE ADNEXA
  15. MS CONTIN [Concomitant]
     Active Substance: MORPHINE SULFATE
     Route: 048
  16. SUTENT [Concomitant]
     Active Substance: SUNITINIB MALATE
     Route: 048

REACTIONS (10)
  - Haemorrhage [Unknown]
  - Death [Fatal]
  - Decreased appetite [Unknown]
  - Anaemia [Unknown]
  - Disease recurrence [Unknown]
  - Oedema peripheral [Unknown]
  - Off label use [Unknown]
  - Pain [Unknown]
  - Neck pain [Unknown]
  - Weight decreased [Unknown]

NARRATIVE: CASE EVENT DATE: 20060923
